FAERS Safety Report 7048786-4 (Version None)
Quarter: 2010Q4

REPORT INFORMATION
  Report Type: 
  Country: None (occurrence: None)
  Receive Date: 20101018
  Receipt Date: 20101006
  Transmission Date: 20110411
  Serious: Yes (Other)
  Sender: FDA-Public Use
  Company Number: US-JNJFOC-20100302414

PATIENT
  Sex: Male
  Weight: 60.7 kg

DRUGS (11)
  1. REMICADE [Suspect]
     Indication: INFLAMMATORY BOWEL DISEASE
     Route: 042
  2. REMICADE [Suspect]
     Route: 042
  3. PREDNISONE [Suspect]
     Indication: SINUSITIS
     Route: 048
  4. PREDNISONE [Suspect]
     Route: 048
  5. PREDNISONE [Suspect]
     Indication: ASTHMA
     Route: 048
  6. PREDNISONE [Suspect]
     Route: 048
  7. 5-ASA [Concomitant]
     Route: 048
  8. CLARITHROMYCIN [Concomitant]
     Indication: SINUSITIS
  9. ALBUTEROL [Concomitant]
  10. MULTI-VITAMINS [Concomitant]
  11. RETIN-A [Concomitant]
     Route: 061

REACTIONS (3)
  - LOSS OF CONSCIOUSNESS [None]
  - MYOCLONIC EPILEPSY [None]
  - SYNCOPE [None]
